FAERS Safety Report 9416275 (Version 1)
Quarter: 2013Q3

REPORT INFORMATION
  Report Type: Spontaneous
  Country: US (occurrence: US)
  Receive Date: 20130724
  Receipt Date: 20130724
  Transmission Date: 20140515
  Serious: Yes (Hospitalization)
  Sender: FDA-Public Use
  Company Number: US-BAYER-2013-088695

PATIENT
  Age: 35 Year
  Sex: Female
  Weight: 74.38 kg

DRUGS (9)
  1. YASMIN [Suspect]
     Indication: CONTRACEPTION
  2. VICODIN [Concomitant]
     Indication: BACK PAIN
  3. METHOCARBAMOL [Concomitant]
     Indication: MUSCLE SPASMS
  4. IBUPROFEN [Concomitant]
     Indication: BACK PAIN
  5. CALCIUM [Concomitant]
     Indication: MINERAL SUPPLEMENTATION
  6. METHYLPREDNISOLONE [Concomitant]
  7. PREDNISONE [Concomitant]
  8. ACETAMINOPHEN W/CODEINE [Concomitant]
  9. NEURONTIN [Concomitant]
     Indication: BACK PAIN

REACTIONS (1)
  - Deep vein thrombosis [Not Recovered/Not Resolved]
